FAERS Safety Report 12221054 (Version 1)
Quarter: 2016Q1

REPORT INFORMATION
  Report Type: Spontaneous
  Country: US (occurrence: None)
  Receive Date: 20160329
  Receipt Date: 20160329
  Transmission Date: 20160526
  Serious: Yes (Other)
  Sender: FDA-Public Use
  Company Number: None

PATIENT
  Age: 29 Year
  Sex: Female
  Weight: 81.19 kg

DRUGS (1)
  1. NUVARING [Suspect]
     Active Substance: ETHINYL ESTRADIOL\ETONOGESTREL
     Indication: CONTRACEPTION
     Dosage: 1 RING ONCE A MONTH VAGINAL
     Route: 067
     Dates: start: 20160228, end: 20160320

REACTIONS (3)
  - Diarrhoea [None]
  - Abdominal pain [None]
  - Menstrual disorder [None]

NARRATIVE: CASE EVENT DATE: 20160321
